FAERS Safety Report 10644921 (Version 5)
Quarter: 2015Q4

REPORT INFORMATION
  Report Type: Report from Study
  Country: US (occurrence: US)
  Receive Date: 20141211
  Receipt Date: 20151104
  Transmission Date: 20160304
  Serious: Yes (Hospitalization, Other)
  Sender: FDA-Public Use
  Company Number: US-AMGEN-USASL2014095104

PATIENT
  Age: 72 Year
  Sex: Female
  Weight: 68 kg

DRUGS (1)
  1. NPLATE [Suspect]
     Active Substance: ROMIPLOSTIM
     Indication: IMMUNE THROMBOCYTOPENIC PURPURA
     Dosage: 630 MUG, UNK
     Route: 065
     Dates: start: 201407

REACTIONS (22)
  - Pulmonary thrombosis [Unknown]
  - Headache [Unknown]
  - Mobility decreased [Unknown]
  - Weight increased [Unknown]
  - Hospitalisation [Unknown]
  - Dyspnoea [Unknown]
  - Thrombosis [Unknown]
  - Epistaxis [Unknown]
  - Fatigue [Unknown]
  - Throat tightness [Unknown]
  - Deep vein thrombosis [Unknown]
  - Discomfort [Unknown]
  - Bronchitis [Recovered/Resolved]
  - Diabetes mellitus [Unknown]
  - Injection site pain [Unknown]
  - Platelet count decreased [Recovering/Resolving]
  - Injection site bruising [Unknown]
  - Cataract [Unknown]
  - Hair colour changes [Unknown]
  - Dizziness postural [Unknown]
  - Vertigo [Unknown]
  - Arthralgia [Unknown]

NARRATIVE: CASE EVENT DATE: 201411
